FAERS Safety Report 19467674 (Version 1)
Quarter: 2021Q2

REPORT INFORMATION
  Report Type: Spontaneous
  Country: US (occurrence: US)
  Receive Date: 20210628
  Receipt Date: 20210628
  Transmission Date: 20210717
  Serious: No
  Sender: FDA-Public Use
  Company Number: None

PATIENT
  Age: 41 Year
  Sex: Female
  Weight: 59.4 kg

DRUGS (6)
  1. VALACYCLOVIR [Concomitant]
     Active Substance: VALACYCLOVIR HYDROCHLORIDE
  2. MAGNESIUM [Concomitant]
     Active Substance: MAGNESIUM
  3. SKYLA [Concomitant]
     Active Substance: LEVONORGESTREL
  4. VITAMIN D [Concomitant]
     Active Substance: VITAMIN D NOS
  5. EMGALITY [Suspect]
     Active Substance: GALCANEZUMAB-GNLM
     Indication: MIGRAINE PROPHYLAXIS
     Dosage: ?          QUANTITY:1 INJECTION(S);OTHER FREQUENCY:MONTHLY;?
     Dates: start: 20210509, end: 20210510
  6. SUMATRIPTAN. [Concomitant]
     Active Substance: SUMATRIPTAN

REACTIONS (5)
  - Muscle spasms [None]
  - Musculoskeletal stiffness [None]
  - Arthralgia [None]
  - Back pain [None]
  - Myalgia [None]

NARRATIVE: CASE EVENT DATE: 20210621
